FAERS Safety Report 6479574-5 (Version None)
Quarter: 2009Q4

REPORT INFORMATION
  Report Type: 
  Country: None (occurrence: None)
  Receive Date: 20091207
  Receipt Date: 20091207
  Transmission Date: 20100525
  Serious: Yes (Disabling, Other)
  Sender: FDA-Public Use
  Company Number: None

PATIENT
  Age: 30 Year
  Sex: Female
  Weight: 90.7194 kg

DRUGS (1)
  1. MIRENA [Suspect]
     Indication: CONTRACEPTION

REACTIONS (5)
  - DEVICE DISLOCATION [None]
  - ECONOMIC PROBLEM [None]
  - MEDICAL DEVICE DISCOMFORT [None]
  - PAIN [None]
  - PRODUCT QUALITY ISSUE [None]
